FAERS Safety Report 8913034 (Version 2)
Quarter: 2012Q4

REPORT INFORMATION
  Report Type: Spontaneous
  Country: US (occurrence: None)
  Receive Date: 20121113
  Receipt Date: 20121123
  Transmission Date: 20130627
  Serious: Yes (Hospitalization)
  Sender: FDA-Public Use
  Company Number: DKLU1086222

PATIENT
  Sex: Male

DRUGS (1)
  1. NEOPROFEN [Suspect]
     Indication: PYREXIA
     Dosage: Day  8  of  life-stopped
10 mg/kg milligram(s)/kilogram, As needed

REACTIONS (3)
  - Kernicterus [None]
  - Maternal drugs affecting foetus [None]
  - Auditory neuropathy spectrum disorder [None]
